FAERS Safety Report 8262009-X (Version None)
Quarter: 2012Q2

REPORT INFORMATION
  Report Type: 
  Country: None (occurrence: None)
  Receive Date: 20120405
  Receipt Date: 20120328
  Transmission Date: 20120825
  Serious: Yes (Hospitalization)
  Sender: FDA-Public Use
  Company Number: US-BAYER-2012-012417

PATIENT
  Age: 24 Year
  Sex: Female
  Weight: 65.306 kg

DRUGS (1)
  1. MIRENA [Suspect]
     Indication: CONTRACEPTION
     Dosage: 20 ?G/D, UNK
     Route: 015
     Dates: start: 20080919, end: 20120105

REACTIONS (2)
  - ABDOMINAL PAIN [None]
  - ECTOPIC PREGNANCY [None]
